FAERS Safety Report 7527874-X (Version None)
Quarter: 2011Q2

REPORT INFORMATION
  Report Type: 
  Country: None (occurrence: None)
  Receive Date: 20110607
  Receipt Date: 20110602
  Transmission Date: 20111010
  Serious: Yes (Death, Hospitalization)
  Sender: FDA-Public Use
  Company Number: US-ASTELLAS-2011US002689

PATIENT
  Age: 56 Year
  Sex: Female
  Weight: 53 kg

DRUGS (2)
  1. ERLOTINIB HYDROCHLORIDE [Suspect]
     Indication: BILE DUCT CANCER
     Dosage: 100 MG, UID/QD
     Route: 048
     Dates: start: 20110215, end: 20110418
  2. SORAFENIB [Suspect]
     Indication: BILE DUCT CANCER
     Dosage: 400 MG, BID
     Route: 048
     Dates: start: 20110215, end: 20110418

REACTIONS (3)
  - HYPERTENSION [None]
  - SEPSIS [None]
  - ASCITES [None]
